FAERS Safety Report 7568579-9 (Version None)
Quarter: 2011Q2

REPORT INFORMATION
  Report Type: 
  Country: None (occurrence: None)
  Receive Date: 20110617
  Receipt Date: 20110606
  Transmission Date: 20111010
  Serious: Yes (Other)
  Sender: FDA-Public Use
  Company Number: 2011MA007070

PATIENT
  Age: 30 Year
  Sex: Male

DRUGS (3)
  1. ALBUTEROL [Concomitant]
  2. DICLOFENAC SODIUM [Suspect]
     Dates: start: 20110519
  3. ACETAMINOPHEN [Concomitant]

REACTIONS (3)
  - LIP SWELLING [None]
  - DYSPNOEA [None]
  - MUSCLE TIGHTNESS [None]
